FAERS Safety Report 8014564-2 (Version None)
Quarter: 2011Q4

REPORT INFORMATION
  Report Type: 
  Country: None (occurrence: None)
  Receive Date: 20111229
  Receipt Date: 20111226
  Transmission Date: 20120403
  Serious: Yes (Other)
  Sender: FDA-Public Use
  Company Number: US-PFIZER INC-2011313476

PATIENT
  Sex: Male
  Weight: 164.2 kg

DRUGS (2)
  1. VIAGRA [Suspect]
     Indication: ERECTILE DYSFUNCTION
     Dosage: 1000 MG, DAILY
     Route: 048
  2. VIAGRA [Suspect]
     Dosage: 2000 MG, UNK
     Route: 048
     Dates: start: 20111224

REACTIONS (3)
  - INCORRECT DOSE ADMINISTERED [None]
  - ERECTION INCREASED [None]
  - ABDOMINAL DISCOMFORT [None]
